FAERS Safety Report 24979880 (Version 1)
Quarter: 2025Q1

REPORT INFORMATION
  Report Type: Spontaneous
  Country: TR (occurrence: TR)
  Receive Date: 20250218
  Receipt Date: 20250218
  Transmission Date: 20250409
  Serious: Yes (Other)
  Sender: GILEAD
  Company Number: TR-GILEAD-2025-0704004

PATIENT
  Age: 49 Year
  Sex: Female

DRUGS (1)
  1. TRODELVY [Suspect]
     Active Substance: SACITUZUMAB GOVITECAN-HZIY
     Indication: Breast cancer metastatic
     Route: 065
     Dates: start: 20240313

REACTIONS (5)
  - Disease progression [Unknown]
  - Neutropenia [Unknown]
  - Dyspnoea [Unknown]
  - Cough [Unknown]
  - Pleural effusion [Unknown]
